FAERS Safety Report 9785609 (Version 1)
Quarter: 2013Q4

REPORT INFORMATION
  Report Type: Spontaneous
  Country: US (occurrence: US)
  Receive Date: 20131227
  Receipt Date: 20131227
  Transmission Date: 20140711
  Serious: No
  Sender: FDA-Public Use
  Company Number: US-TEVA-448848USA

PATIENT
  Sex: Female

DRUGS (2)
  1. PROAIR HFA [Suspect]
     Indication: ASTHMA
     Route: 055
     Dates: end: 20131126
  2. PROAIR HFA [Suspect]
     Route: 055
     Dates: start: 20131201

REACTIONS (2)
  - Asthma [Unknown]
  - Product quality issue [Unknown]
